FAERS Safety Report 9995543 (Version 1)
Quarter: 2014Q1

REPORT INFORMATION
  Report Type: Spontaneous
  Country: US (occurrence: None)
  Receive Date: 20140307
  Receipt Date: 20140307
  Transmission Date: 20141002
  Serious: Yes (Other)
  Sender: FDA-Public Use
  Company Number: None

PATIENT
  Age: 32 Year
  Sex: Female

DRUGS (1)
  1. ROPINIROLE [Suspect]
     Indication: TORTICOLLIS
     Dosage: INJECTION IN HOSPITAL MOUTH... DISC
     Dates: start: 20131120

REACTIONS (1)
  - Hallucination [None]
